FAERS Safety Report 12991091 (Version 1)
Quarter: 2016Q4

REPORT INFORMATION
  Report Type: Report from Study
  Country: JP (occurrence: JP)
  Receive Date: 20161201
  Receipt Date: 20161201
  Transmission Date: 20170207
  Serious: Yes (Hospitalization)
  Sender: FDA-Public Use
  Company Number: JP-EISAI MEDICAL RESEARCH-EC-2016-022693

PATIENT
  Age: 73 Year
  Sex: Male
  Weight: 49 kg

DRUGS (2)
  1. ARICEPT [Suspect]
     Active Substance: DONEPEZIL HYDROCHLORIDE
     Indication: DEMENTIA WITH LEWY BODIES
     Dosage: UNKNOWN
     Route: 048
     Dates: start: 20160212
  2. SOLANAX [Concomitant]
     Active Substance: ALPRAZOLAM

REACTIONS (2)
  - Physical assault [Unknown]
  - Aggression [Unknown]

NARRATIVE: CASE EVENT DATE: 2016
